FAERS Safety Report 15424117 (Version 1)
Quarter: 2018Q3

REPORT INFORMATION
  Report Type: Spontaneous
  Country: US (occurrence: US)
  Receive Date: 20180914
  Receipt Date: 20180914
  Transmission Date: 20181010
  Serious: No
  Sender: FDA-Public Use
  Company Number: None

PATIENT
  Age: 57 Year
  Sex: Female
  Weight: 68.04 kg

DRUGS (3)
  1. OTREXUP [Suspect]
     Active Substance: METHOTREXATE
     Indication: CONNECTIVE TISSUE DISORDER
  2. OTREXUP [Suspect]
     Active Substance: METHOTREXATE
     Indication: POLYMYOSITIS
     Route: 058
     Dates: start: 201807
  3. OTREXUP [Suspect]
     Active Substance: METHOTREXATE
     Indication: FIBROMYALGIA

REACTIONS (2)
  - Therapy cessation [None]
  - Cellulitis [None]
